FAERS Safety Report 4518917-6 (Version None)
Quarter: 2004Q4

REPORT INFORMATION
  Report Type: 
  Country: None (occurrence: None)
  Receive Date: 20041203
  Receipt Date: 20041203
  Transmission Date: 20050328
  Serious: Yes (Hospitalization)
  Sender: FDA-Public Use
  Company Number: None

PATIENT
  Age: 48 Year
  Sex: Female
  Weight: 83.9154 kg

DRUGS (8)
  1. CISPLATIN [Suspect]
     Dosage: 148 MG
     Dates: start: 20040823, end: 20041119
  2. FLUOROURACIL [Suspect]
     Indication: ANAL CANCER
     Dosage: 5 FU 7800 MG
     Dates: start: 20040823, end: 20041119
  3. RADIATION [Suspect]
     Indication: ANAL CANCER
     Dosage: DAILY X 29 DAYS
     Dates: start: 20041018, end: 20041126
  4. ATENOLOL [Concomitant]
  5. ZYPREXA [Concomitant]
  6. LEXAPRO [Concomitant]
  7. SYNTHROID [Concomitant]
  8. MS CONTIN [Concomitant]

REACTIONS (4)
  - DIARRHOEA [None]
  - NAUSEA [None]
  - PROCTALGIA [None]
  - PYREXIA [None]
